FAERS Safety Report 7729519-2 (Version None)
Quarter: 2011Q3

REPORT INFORMATION
  Report Type: 
  Country: None (occurrence: None)
  Receive Date: 20110906
  Receipt Date: 20110824
  Transmission Date: 20111222
  Serious: Yes (Disabling)
  Sender: FDA-Public Use
  Company Number: GB-ALLERGAN-1107775US

PATIENT
  Age: 65 Year
  Sex: Male

DRUGS (4)
  1. RABEPRAZOLE SODIUM [Concomitant]
     Dosage: 20 MG, BID
     Route: 048
     Dates: start: 20090101
  2. SIMVASTATIN [Concomitant]
     Dosage: 40 MG, UNK
     Route: 048
     Dates: start: 20080101
  3. BOTULINUM TOXIN TYPE A [Suspect]
     Dosage: UNK UNITS, SINGLE
     Dates: start: 20080301, end: 20080301
  4. BOTULINUM TOXIN TYPE A [Suspect]
     Indication: HYPERTONIC BLADDER
     Dosage: 100 UNITS, SINGLE
     Dates: start: 20100203, end: 20100203

REACTIONS (1)
  - ATRIOVENTRICULAR BLOCK [None]
